FAERS Safety Report 6403312-5 (Version None)
Quarter: 2009Q4

REPORT INFORMATION
  Report Type: 
  Country: None (occurrence: None)
  Receive Date: 20091016
  Receipt Date: 20091008
  Transmission Date: 20100525
  Serious: Yes (Other)
  Sender: FDA-Public Use
  Company Number: US-ASTRAZENECA-2009UW13190

PATIENT
  Age: 47 Year
  Sex: Female
  Weight: 99.8 kg

DRUGS (9)
  1. SEROQUEL [Suspect]
     Indication: DEPRESSION
     Dosage: 100-200 MG
     Route: 048
     Dates: start: 20030101
  2. SEROQUEL [Suspect]
     Indication: ANXIETY
     Dosage: 100-200 MG
     Route: 048
     Dates: start: 20030101
  3. SEROQUEL [Suspect]
     Indication: STRESS
     Dosage: 100-200 MG
     Route: 048
     Dates: start: 20030101
  4. ABILIFY [Concomitant]
     Dates: start: 20050101
  5. HALDOL [Concomitant]
     Dates: start: 19790101
  6. RISPERDAL [Concomitant]
     Dates: start: 20050101
  7. MIRTAZAPINE [Concomitant]
     Dosage: 30-45 MG
     Dates: start: 20050203, end: 20070503
  8. AMITRIPTYLINE [Concomitant]
     Dates: start: 20050202, end: 20070609
  9. TEMAZEPAM [Concomitant]
     Dates: start: 20051202

REACTIONS (6)
  - BLOOD CHOLESTEROL INCREASED [None]
  - DYSPEPSIA [None]
  - HYPERLIPIDAEMIA [None]
  - NEUROPATHY PERIPHERAL [None]
  - OBESITY [None]
  - TYPE 2 DIABETES MELLITUS [None]
